FAERS Safety Report 4713390-7 (Version None)
Quarter: 2005Q3

REPORT INFORMATION
  Report Type: 
  Country: None (occurrence: None)
  Receive Date: 20050711
  Receipt Date: 20050627
  Transmission Date: 20060218
  Serious: Yes (Hospitalization)
  Sender: FDA-Public Use
  Company Number: 103652

PATIENT
  Age: 55 Year
  Sex: Male
  Weight: 72.3 kg

DRUGS (5)
  1. MABTHERA(RITUXIMAB) CONC FOR SOLUTION FOR INFUSION [Suspect]
     Indication: NON-HODGKIN'S LYMPHOMA
     Dosage: 690 MG, Q3M, INTRAVENOUS
     Route: 042
     Dates: start: 20010109, end: 20011218
  2. CYCLOPHOSPHAMIDE [Suspect]
     Indication: NON-HODGKIN'S LYMPHOMA
     Dosage: 1395 MG,
     Dates: start: 20010727, end: 20011103
  3. DOXORUBICIN HCL [Suspect]
     Indication: NON-HODGKIN'S LYMPHOMA
     Dosage: 93 MG,
     Dates: start: 20010727, end: 20011103
  4. VINCRISTINE [Suspect]
     Indication: NON-HODGKIN'S LYMPHOMA
     Dosage: 2 MG,
     Dates: start: 20010721, end: 20011103
  5. PREDNISONE [Suspect]
     Indication: NON-HODGKIN'S LYMPHOMA
     Dosage: 100 MG,
     Dates: start: 20010727, end: 20011107

REACTIONS (1)
  - INFLUENZA [None]
